FAERS Safety Report 25426551 (Version 1)
Quarter: 2025Q2

REPORT INFORMATION
  Report Type: Spontaneous
  Country: US (occurrence: US)
  Receive Date: 20250612
  Receipt Date: 20250612
  Transmission Date: 20250716
  Serious: Yes (Hospitalization, Other)
  Sender: RANBAXY
  Company Number: US-SUN PHARMACEUTICAL INDUSTRIES LTD-2025R1-511145

PATIENT
  Age: 5 Decade
  Sex: Male

DRUGS (6)
  1. WARFARIN [Suspect]
     Active Substance: WARFARIN
     Indication: Atrial fibrillation
     Dosage: 2 MILLIGRAM, DAILY
     Route: 048
  2. BUMETANIDE [Concomitant]
     Active Substance: BUMETANIDE
     Indication: Embolic stroke
     Route: 042
  3. ATORVASTATIN [Concomitant]
     Active Substance: ATORVASTATIN
     Indication: Hyperlipidaemia
     Dosage: 40 MILLIGRAM, DAILY
     Route: 048
  4. AMIODARONE [Concomitant]
     Active Substance: AMIODARONE
     Indication: Ventricular extrasystoles
     Dosage: 400 MILLIGRAM, BID
     Route: 048
  5. AMIODARONE [Concomitant]
     Active Substance: AMIODARONE
     Indication: Ventricular tachycardia
  6. SPIRONOLACTONE [Concomitant]
     Active Substance: SPIRONOLACTONE
     Indication: Cardiac failure
     Dosage: 25 MILLIGRAM, DAILY
     Route: 048

REACTIONS (3)
  - Therapeutic response decreased [Unknown]
  - Aortic thrombosis [Unknown]
  - Acute myocardial infarction [Unknown]
